FAERS Safety Report 14587267 (Version 1)
Quarter: 2018Q1

REPORT INFORMATION
  Report Type: Spontaneous
  Country: US (occurrence: US)
  Receive Date: 20180228
  Receipt Date: 20180228
  Transmission Date: 20180509
  Serious: Yes (Hospitalization)
  Sender: FDA-Public Use
  Company Number: None

PATIENT
  Age: 35 Year
  Sex: Female
  Weight: 85 kg

DRUGS (1)
  1. CASPOFUNGIN [Suspect]
     Active Substance: CASPOFUNGIN

REACTIONS (1)
  - Hypotension [None]

NARRATIVE: CASE EVENT DATE: 20180108
